FAERS Safety Report 17127482 (Version 1)
Quarter: 2019Q4

REPORT INFORMATION
  Report Type: Spontaneous
  Country: US (occurrence: US)
  Receive Date: 20191114
  Receipt Date: 20191114
  Transmission Date: 20200122
  Serious: No
  Sender: FDA-Public Use
  Company Number: None

PATIENT
  Age: 47 Year
  Sex: Female

DRUGS (2)
  1. COLISTIMETHATE [Suspect]
     Active Substance: COLISTIMETHATE SODIUM
     Indication: LUNG TRANSPLANT
     Dosage: ?          OTHER ROUTE:UNKNOWN?
     Dates: start: 20191114
  2. COLISTIMETHATE [Suspect]
     Active Substance: COLISTIMETHATE SODIUM
     Indication: INFECTION
     Dosage: ?          OTHER ROUTE:UNKNOWN?
     Dates: start: 20191114

REACTIONS (1)
  - Off label use [None]

NARRATIVE: CASE EVENT DATE: 20191114
